FAERS Safety Report 22289291 (Version 1)
Quarter: 2023Q2

REPORT INFORMATION
  Report Type: Spontaneous
  Country: US (occurrence: None)
  Receive Date: 20230504
  Receipt Date: 20230504
  Transmission Date: 20230721
  Serious: No
  Sender: FDA-Public Use
  Company Number: None

PATIENT
  Age: 63 Year
  Sex: Female

DRUGS (5)
  1. RHOFADE [Suspect]
     Active Substance: OXYMETAZOLINE HYDROCHLORIDE
     Indication: Rosacea
     Dosage: OTHER QUANTITY : 1 APPLICATION;?FREQUENCY : DAILY;?
     Route: 061
     Dates: start: 20230427, end: 20230430
  2. medroxyprogesterone 2.5 mg [Concomitant]
  3. 1 a day 65+ [Concomitant]
  4. VITAMIN D3 [Concomitant]
     Active Substance: CHOLECALCIFEROL
  5. ALEVE [Concomitant]
     Active Substance: NAPROXEN SODIUM

REACTIONS (1)
  - Application site dermatitis [None]

NARRATIVE: CASE EVENT DATE: 20230430
